FAERS Safety Report 17805451 (Version 1)
Quarter: 2020Q2

REPORT INFORMATION
  Report Type: Spontaneous
  Country: DE (occurrence: DE)
  Receive Date: 20200520
  Receipt Date: 20200520
  Transmission Date: 20200714
  Serious: Yes (Hospitalization, Other)
  Sender: FDA-Public Use
  Company Number: DE-ACCORD-182552

PATIENT
  Age: 80 Year
  Sex: Male

DRUGS (10)
  1. METOPROLOL. [Concomitant]
     Active Substance: METOPROLOL
     Dosage: 23.75 MG, 1-0-1-0
  2. SALBUTAMOL [Concomitant]
     Active Substance: ALBUTEROL
     Dosage: NK MG, 4X
  3. TORASEMIDE [Concomitant]
     Active Substance: TORSEMIDE
     Dosage: 10 MG, 0.5-0-0-0
  4. ATORVASTATIN [Concomitant]
     Active Substance: ATORVASTATIN
     Dosage: 20 MG, 0-0-1-0
  5. IPRATROPIUM [Concomitant]
     Active Substance: IPRATROPIUM
     Dosage: NK MG, 4X, NASAL, STRENGTH: 0.03%
  6. ESOMEPRAZOLE/ESOMEPRAZOLE MAGNESIUM/ESOMEPRAZOLE SODIUM [Concomitant]
     Active Substance: ESOMEPRAZOLE
     Dosage: 20 MG, 0-0-1-0
  7. CLOPIDOGREL [Suspect]
     Active Substance: CLOPIDOGREL BISULFATE
     Indication: PRODUCT USED FOR UNKNOWN INDICATION
     Dosage: 75 MG, 1-0-0-0
  8. ACETYLSALICYLIC ACID [Suspect]
     Active Substance: ASPIRIN
     Indication: PRODUCT USED FOR UNKNOWN INDICATION
     Dosage: 100 MG, 0-1-0-0
  9. DIGITOXIN [Concomitant]
     Active Substance: DIGITOXIN
     Dosage: 0.07 MG, 1-0-0-0
  10. TAMSULOSIN/TAMSULOSIN HYDROCHLORIDE [Concomitant]
     Active Substance: TAMSULOSIN HYDROCHLORIDE
     Dosage: 0.4 MG, 0-0-1-0

REACTIONS (4)
  - Wound [Unknown]
  - Pallor [Unknown]
  - Thoracic haemorrhage [Unknown]
  - Post procedural haemorrhage [Unknown]
